FAERS Safety Report 19710955 (Version 1)
Quarter: 2021Q3

REPORT INFORMATION
  Report Type: Spontaneous
  Country: FR (occurrence: FR)
  Receive Date: 20210817
  Receipt Date: 20210817
  Transmission Date: 20211014
  Serious: Yes (Hospitalization)
  Sender: FDA-Public Use
  Company Number: FR-MYLANLABS-2021M1051411

PATIENT
  Age: 22 Year
  Sex: Male
  Weight: 106 kg

DRUGS (11)
  1. DOLIPRANE [Concomitant]
     Active Substance: ACETAMINOPHEN
     Dosage: UNK
  2. VALACICLOVIR [Concomitant]
     Active Substance: VALACYCLOVIR HYDROCHLORIDE
     Dosage: UNK
  3. METHOTREXATE. [Suspect]
     Active Substance: METHOTREXATE
     Indication: PRECURSOR T-LYMPHOBLASTIC LYMPHOMA/LEUKAEMIA
     Dosage: 15 MILLIGRAM, QD
     Route: 024
     Dates: start: 20210112, end: 20210112
  4. MERCAPTOPURINE. [Concomitant]
     Active Substance: MERCAPTOPURINE
     Dosage: UNK
  5. WELLVONE [Concomitant]
     Active Substance: ATOVAQUONE
     Dosage: UNK
  6. CYTARABINE. [Concomitant]
     Active Substance: CYTARABINE
     Dosage: UNK
  7. DEPO?MEDROL [Concomitant]
     Active Substance: METHYLPREDNISOLONE ACETATE
     Dosage: UNK
  8. CALCIUM FOLINATE [Concomitant]
     Active Substance: LEUCOVORIN CALCIUM
  9. METHOTREXATE. [Suspect]
     Active Substance: METHOTREXATE
     Dosage: 10900 MILLIGRAM, QD
     Route: 042
     Dates: start: 20210111, end: 20210111
  10. PRIMPERAN [Concomitant]
     Active Substance: METOCLOPRAMIDE HYDROCHLORIDE
     Dosage: UNK
  11. VINCRISTINE HOSPIRA [Concomitant]
     Active Substance: VINCRISTINE
     Dosage: UNK

REACTIONS (3)
  - Acute kidney injury [Recovered/Resolved]
  - Drug level increased [Recovered/Resolved]
  - Accidental overdose [Recovered/Resolved]

NARRATIVE: CASE EVENT DATE: 20210113
